FAERS Safety Report 11815628 (Version 1)
Quarter: 2015Q4

REPORT INFORMATION
  Report Type: Report from Study
  Country: BR (occurrence: BR)
  Receive Date: 20151209
  Receipt Date: 20151209
  Transmission Date: 20160305
  Serious: No
  Sender: FDA-Public Use
  Company Number: PHHY2015BR161146

PATIENT
  Sex: Male
  Weight: 95 kg

DRUGS (1)
  1. NILOTINIB [Suspect]
     Active Substance: NILOTINIB
     Indication: CHRONIC MYELOID LEUKAEMIA
     Dosage: 800 MG (2 TABLETS OF 200 MG AT 5 AM AND 2 TABLETS OF 200 MG AT 6 PM), QD
     Route: 048

REACTIONS (1)
  - Inappropriate schedule of drug administration [Unknown]
